FAERS Safety Report 6509690-0 (Version None)
Quarter: 2009Q4

REPORT INFORMATION
  Report Type: 
  Country: None (occurrence: None)
  Receive Date: 20091221
  Receipt Date: 20091221
  Transmission Date: 20100525
  Serious: Yes (Hospitalization)
  Sender: FDA-Public Use
  Company Number: None

PATIENT
  Age: 68 Year
  Sex: Male
  Weight: 102 kg

DRUGS (2)
  1. ENALAPRIL MALEATE [Suspect]
     Dosage: 20 MG BID PO
     Route: 048
     Dates: start: 20080111, end: 20091001
  2. VANCOMYCIN [Suspect]
     Dosage: 1 GM BID IV
     Route: 042
     Dates: start: 20090904, end: 20091001

REACTIONS (6)
  - DEHYDRATION [None]
  - OEDEMA PERIPHERAL [None]
  - RASH [None]
  - RASH MACULO-PAPULAR [None]
  - RENAL FAILURE ACUTE [None]
  - RENAL TUBULAR NECROSIS [None]
